FAERS Safety Report 9814374 (Version 2)
Quarter: 2014Q1

REPORT INFORMATION
  Report Type: Spontaneous
  Country: US (occurrence: US)
  Receive Date: 20140113
  Receipt Date: 20140113
  Transmission Date: 20141002
  Serious: Yes (Other)
  Sender: FDA-Public Use
  Company Number: US-GE HEALTHCARE MEDICAL DIAGNOSTICS-OSCN-PR-0902S-0076

PATIENT
  Sex: Female

DRUGS (29)
  1. OMNISCAN [Suspect]
     Indication: CARDIAC AMYLOIDOSIS
     Route: 042
     Dates: start: 20041110, end: 20041110
  2. ACIPHEX [Concomitant]
  3. ALBUTEROL [Concomitant]
  4. ATIVAN [Concomitant]
  5. BUDESONIDE [Concomitant]
  6. CAPOTEN [Concomitant]
  7. DECADRON [Concomitant]
  8. DIGOXIN [Concomitant]
  9. HEPARIN [Concomitant]
  10. LASIX [Concomitant]
  11. PROTONIX [Concomitant]
  12. VICODIN [Concomitant]
  13. PHENERGAN [Concomitant]
  14. MAGNESIUM SULFATE [Concomitant]
  15. HALDOL [Concomitant]
  16. POTASSIUM [Concomitant]
  17. SODIUM PHOSPHATE [Concomitant]
  18. LEVOPHED [Concomitant]
  19. CAPTOPRIL [Concomitant]
  20. PREDNISONE [Concomitant]
  21. DOBUTREX [Concomitant]
  22. ATROVENT [Concomitant]
  23. EPINEPHRINE [Concomitant]
  24. ATROPINE [Concomitant]
  25. BICARBONATE [Concomitant]
  26. DEXTROSE [Concomitant]
  27. VASOPRESSIN [Concomitant]
  28. COMBIVENT [Concomitant]
  29. PRILOSEC [Concomitant]

REACTIONS (1)
  - Nephrogenic systemic fibrosis [Not Recovered/Not Resolved]
